FAERS Safety Report 7408175-7 (Version None)
Quarter: 2011Q2

REPORT INFORMATION
  Report Type: 
  Country: None (occurrence: None)
  Receive Date: 20110412
  Receipt Date: 20101210
  Transmission Date: 20111010
  Serious: Yes (Other)
  Sender: FDA-Public Use
  Company Number: US-BAYER-201031340NA

PATIENT
  Age: 23 Year
  Sex: Female

DRUGS (2)
  1. YAZ [Suspect]
     Route: 065
     Dates: start: 20060701, end: 20080808
  2. INDOMETHACIN [Concomitant]
     Dosage: 50 MG, UNK

REACTIONS (1)
  - PULMONARY EMBOLISM [None]
